FAERS Safety Report 7002227-1 (Version None)
Quarter: 2010Q3

REPORT INFORMATION
  Report Type: 
  Country: None (occurrence: None)
  Receive Date: 20100920
  Receipt Date: 20091110
  Transmission Date: 20110219
  Serious: Yes (Other)
  Sender: FDA-Public Use
  Company Number: US-ASTRAZENECA-2006UW11337

PATIENT
  Age: 16596 Day
  Sex: Female
  Weight: 95.3 kg

DRUGS (44)
  1. SEROQUEL [Suspect]
     Indication: BIPOLAR DISORDER
     Dosage: 100 MG TO 200 MG
     Route: 048
     Dates: start: 20021001
  2. SEROQUEL [Suspect]
     Indication: SCHIZOPHRENIA
     Dosage: 100 MG TO 200 MG
     Route: 048
     Dates: start: 20021001
  3. SEROQUEL [Suspect]
     Indication: DEPRESSION
     Dosage: 100 MG TO 200 MG
     Route: 048
     Dates: start: 20021001
  4. SEROQUEL [Suspect]
     Dosage: 200 MG FOUR TABLETS AT NIGHT
     Route: 048
  5. SEROQUEL [Suspect]
     Dosage: 200 MG FOUR TABLETS AT NIGHT
     Route: 048
  6. SEROQUEL [Suspect]
     Dosage: 200 MG FOUR TABLETS AT NIGHT
     Route: 048
  7. SEROQUEL [Suspect]
     Dosage: 200 MG TWO TABLETS QHS
     Route: 048
  8. SEROQUEL [Suspect]
     Dosage: 200 MG TWO TABLETS QHS
     Route: 048
  9. SEROQUEL [Suspect]
     Dosage: 200 MG TWO TABLETS QHS
     Route: 048
  10. SEROQUEL [Suspect]
     Route: 048
  11. SEROQUEL [Suspect]
     Route: 048
  12. SEROQUEL [Suspect]
     Route: 048
  13. RISPERDAL [Concomitant]
  14. ZYPREXA/SYMBYAX [Concomitant]
  15. REMERON [Concomitant]
     Route: 065
  16. PREVACID [Concomitant]
     Route: 065
  17. EFFEXOR [Concomitant]
     Dosage: DOSE FLUCTUATED FROM 150 MG TO 300 MG DAILY
     Route: 065
  18. LUNESTA [Concomitant]
     Route: 048
  19. GLUCOTROL [Concomitant]
     Dosage: DOSE INCREASED FROM 10 MG DAILY TO 10 MG TWICE A DAY
     Route: 048
  20. ZYRTEC [Concomitant]
     Indication: PRURITUS GENERALISED
     Route: 065
  21. ASPIRIN [Concomitant]
     Dosage: 81 TO 325 MG STRENGTH
     Route: 065
  22. LISINOPRIL [Concomitant]
     Route: 048
  23. GLUCOPHAGE [Concomitant]
     Dosage: 500 MG TO 1000 MG
     Route: 065
  24. SORBITOL [Concomitant]
     Indication: CONSTIPATION
     Dosage: 70 PERCENT SOLUTION 2 TABLESPOON DAILY
     Route: 065
  25. DILANTIN [Concomitant]
     Dosage: 400 TO 500 MG
     Route: 048
  26. DEPAKOTE [Concomitant]
     Route: 065
  27. PROTONIX [Concomitant]
     Route: 048
  28. LASIX [Concomitant]
     Route: 065
  29. PREMARIN [Concomitant]
     Route: 065
  30. NORVASC [Concomitant]
     Route: 065
  31. POTASSIUM CHLORIDE [Concomitant]
     Route: 065
  32. ELAVIL [Concomitant]
     Route: 048
  33. TIZANIDINE HCL [Concomitant]
     Route: 065
  34. CELEBREX [Concomitant]
     Route: 065
  35. COLACE [Concomitant]
     Route: 065
  36. PERCOCET [Concomitant]
     Dosage: 5/325 MG T.I.D
     Route: 048
  37. PRAVACHOL [Concomitant]
     Route: 065
  38. ADVAIR DISKUS 100/50 [Concomitant]
     Dosage: 250/50 ONE PUFF TWICE A DAY
     Route: 065
  39. MENTAX [Concomitant]
     Route: 065
  40. VYTORIN [Concomitant]
     Dosage: 10/40 ONE QHS
     Route: 065
  41. CYMBALTA [Concomitant]
     Route: 065
  42. FERROUS SULFATE TAB [Concomitant]
     Route: 065
  43. NAPROXEN [Concomitant]
     Route: 065
  44. LORAZEPAM [Concomitant]
     Dosage: STRENGTH 2 MG/ML INJ
     Route: 030

REACTIONS (2)
  - NEUROLEPTIC MALIGNANT SYNDROME [None]
  - TYPE 2 DIABETES MELLITUS [None]
